FAERS Safety Report 15948963 (Version 3)
Quarter: 2019Q3

REPORT INFORMATION
  Report Type: Spontaneous
  Country: PT (occurrence: PT)
  Receive Date: 20190212
  Receipt Date: 20190829
  Transmission Date: 20191004
  Serious: Yes (Life-Threatening, Hospitalization, Other)
  Sender: FDA-Public Use
  Company Number: PT-ACCORD-106801

PATIENT
  Age: 30 Year
  Sex: Male

DRUGS (1)
  1. AMLODIPINE [Suspect]
     Active Substance: AMLODIPINE BESYLATE

REACTIONS (12)
  - Hypotension [Recovered/Resolved]
  - Tachycardia [Recovered/Resolved]
  - Myocardial depression [Unknown]
  - Leukocytosis [Recovered/Resolved]
  - Coma [Recovered/Resolved]
  - Toxicity to various agents [Unknown]
  - Neutrophilia [Recovered/Resolved]
  - Metabolic acidosis [Recovered/Resolved]
  - Hypoinsulinaemia [Unknown]
  - Conduction disorder [Unknown]
  - Tachypnoea [Recovered/Resolved]
  - Haemodynamic instability [Recovered/Resolved]
